FAERS Safety Report 4786018-8 (Version None)
Quarter: 2005Q4

REPORT INFORMATION
  Report Type: 
  Country: None (occurrence: None)
  Receive Date: 20051003
  Receipt Date: 20050923
  Transmission Date: 20060501
  Serious: Yes (Other)
  Sender: FDA-Public Use
  Company Number: PHEH2005US10613

PATIENT
  Age: 65 Year
  Weight: 64 kg

DRUGS (3)
  1. ZOMETA [Suspect]
     Indication: MULTIPLE MYELOMA
     Dosage: 3 MG IV QMONTH
     Dates: start: 20030702, end: 20050101
  2. PERCOCET [Concomitant]
  3. PROCRIT                            /00909301/ [Concomitant]

REACTIONS (1)
  - OSTEONECROSIS [None]
